FAERS Safety Report 6346250-9 (Version None)
Quarter: 2009Q3

REPORT INFORMATION
  Report Type: 
  Country: None (occurrence: None)
  Receive Date: 20090909
  Receipt Date: 20090906
  Transmission Date: 20100115
  Serious: Yes (Death)
  Sender: FDA-Public Use
  Company Number: PHHY2009MX37936

PATIENT
  Sex: Male

DRUGS (1)
  1. EXFORGE [Suspect]
     Indication: HYPERTENSION
     Dosage: 1 DF (160/10 MG)/ DAY
     Route: 048

REACTIONS (3)
  - CARDIAC ARREST [None]
  - DISEASE COMPLICATION [None]
  - RENAL FAILURE [None]
